FAERS Safety Report 7773787-8 (Version None)
Quarter: 2011Q3

REPORT INFORMATION
  Report Type: 
  Country: None (occurrence: None)
  Receive Date: 20110923
  Receipt Date: 20110921
  Transmission Date: 20111222
  Serious: Yes (Death)
  Sender: FDA-Public Use
  Company Number: IT-BRISTOL-MYERS SQUIBB COMPANY-15411804

PATIENT
  Sex: Male

DRUGS (8)
  1. BARACLUDE [Suspect]
     Indication: HEPATITIS B
     Route: 048
  2. FUROSEMIDE [Concomitant]
  3. CANRENONE [Concomitant]
  4. TERLIPRESSIN [Concomitant]
  5. INSULIN [Concomitant]
  6. ALBUMIN (HUMAN) [Concomitant]
  7. OCTREOTIDE ACETATE [Concomitant]
  8. LANSOPRAZOLE [Concomitant]

REACTIONS (1)
  - METABOLIC ACIDOSIS [None]
